FAERS Safety Report 9184407 (Version 1)
Quarter: 2012Q4

REPORT INFORMATION
  Report Type: 
  Country: US (occurrence: US)
  Receive Date: 20121101
  Receipt Date: 20121101
  Transmission Date: 20130627
  Serious: Yes (Hospitalization, Disabling, Other)
  Sender: FDA-Public Use
  Company Number: CHPA2012US022517

PATIENT
  Age: 80 Year
  Sex: Female

DRUGS (1)
  1. BENEFIBER W/ WHEAT DEXTRIN [Suspect]
     Indication: CONSTIPATION
     Dosage: 1 tbsp daily

REACTIONS (13)
  - Abasia [Unknown]
  - Kidney infection [Recovered/Resolved]
  - Escherichia bacteraemia [Recovered/Resolved]
  - Nephrolithiasis [Recovered/Resolved]
  - Gastroenteritis viral [Recovered/Resolved]
  - Dizziness [Not Recovered/Not Resolved]
  - Back pain [Recovered/Resolved]
  - Abdominal pain upper [Recovered/Resolved]
  - Disease recurrence [Not Recovered/Not Resolved]
  - Asthenia [Unknown]
  - Therapeutic response unexpected [Unknown]
  - Off label use [Unknown]
  - Incorrect dose administered [Unknown]
